FAERS Safety Report 5125053-7 (Version None)
Quarter: 2006Q4

REPORT INFORMATION
  Report Type: 
  Country: None (occurrence: None)
  Receive Date: 20061010
  Receipt Date: 20061010
  Transmission Date: 20070319
  Serious: No
  Sender: FDA-Public Use
  Company Number: None

PATIENT
  Sex: Male
  Weight: 64.4108 kg

DRUGS (1)
  1. AMIODARONE HCL [Suspect]
     Dosage: 200 MG
     Dates: start: 20060404

REACTIONS (3)
  - ANXIETY [None]
  - DYSPNOEA [None]
  - HEADACHE [None]
